FAERS Safety Report 8963007 (Version 2)
Quarter: 2013Q1

REPORT INFORMATION
  Report Type: Report from Study
  Country: CA (occurrence: CA)
  Receive Date: 20121214
  Receipt Date: 20130206
  Transmission Date: 20140127
  Serious: Yes (Other)
  Sender: FDA-Public Use
  Company Number: CA-JNJFOC-20121202709

PATIENT
  Age: 70 Year
  Sex: Female
  Weight: 84.4 kg

DRUGS (11)
  1. REMICADE [Suspect]
     Indication: RHEUMATOID ARTHRITIS
     Route: 042
     Dates: start: 20080714
  2. PREDNISONE [Concomitant]
     Route: 065
  3. SYNTHROID [Concomitant]
     Route: 065
  4. AVALIDE [Concomitant]
     Route: 065
  5. ASA [Concomitant]
     Route: 065
  6. PANTOLOC [Concomitant]
     Route: 065
  7. ADALAT [Concomitant]
     Route: 065
  8. MORPHINE [Concomitant]
     Route: 065
  9. B COMPLETE [Concomitant]
     Route: 065
  10. METHADONE [Concomitant]
     Route: 065
  11. GRAVOL [Concomitant]
     Route: 065

REACTIONS (5)
  - Epidural analgesia [Unknown]
  - Laceration [Unknown]
  - Influenza [Recovered/Resolved]
  - Lower respiratory tract infection [Recovered/Resolved]
  - Dyspnoea [Unknown]
